FAERS Safety Report 6584656-3 (Version None)
Quarter: 2010Q1

REPORT INFORMATION
  Report Type: 
  Country: None (occurrence: None)
  Receive Date: 20100217
  Receipt Date: 20100205
  Transmission Date: 20100710
  Serious: Yes (Death)
  Sender: FDA-Public Use
  Company Number: FR-SOLVAY-00210000802

PATIENT
  Age: 81 Year
  Sex: Male

DRUGS (6)
  1. COVERSYL 4 MG TABLET [Suspect]
     Indication: DRUG USE FOR UNKNOWN INDICATION
     Dosage: DAILY DOSE: 4 MILLIGRAM(S)
     Route: 048
     Dates: end: 20091207
  2. KARDEGIC [Suspect]
     Indication: DRUG USE FOR UNKNOWN INDICATION
     Dosage: DAILY DOSE: 160 MILLIGRAM(S)
     Route: 048
     Dates: end: 20091207
  3. EFFEXOR [Suspect]
     Indication: DRUG USE FOR UNKNOWN INDICATION
     Dosage: DAILY DOSE: 75 MILLIGRAM(S)
     Route: 048
     Dates: end: 20091207
  4. RISPERDAL [Suspect]
     Indication: DRUG USE FOR UNKNOWN INDICATION
     Dosage: DAILY DOSE: 2 MILLIGRAM(S)
     Route: 048
     Dates: end: 20091207
  5. PARKINANE LP [Suspect]
     Indication: DRUG USE FOR UNKNOWN INDICATION
     Dosage: DAILY DOSE: 2 MILLIGRAM(S)
     Route: 048
     Dates: end: 20091207
  6. ATARAX [Suspect]
     Indication: DRUG USE FOR UNKNOWN INDICATION
     Dosage: DAILY DOSE: 25 MILLIGRAM(S)
     Route: 048
     Dates: end: 20091207

REACTIONS (1)
  - SUDDEN DEATH [None]
